FAERS Safety Report 25179768 (Version 2)
Quarter: 2025Q3

REPORT INFORMATION
  Report Type: Spontaneous
  Country: US (occurrence: US)
  Receive Date: 20250409
  Receipt Date: 20250814
  Transmission Date: 20251020
  Serious: No
  Sender: VERTEX
  Company Number: US-VERTEX PHARMACEUTICALS-2025-005465

PATIENT
  Sex: Male

DRUGS (1)
  1. TRIKAFTA [Suspect]
     Active Substance: ELEXACAFTOR\IVACAFTOR\TEZACAFTOR
     Indication: Cystic fibrosis
     Route: 048

REACTIONS (4)
  - Asthenia [Unknown]
  - Sleep deficit [Unknown]
  - Brain fog [Unknown]
  - Lethargy [Unknown]
